FAERS Safety Report 9975957 (Version 1)
Quarter: 2014Q1

REPORT INFORMATION
  Report Type: Spontaneous
  Country: US (occurrence: US)
  Receive Date: 20140306
  Receipt Date: 20140306
  Transmission Date: 20141002
  Serious: Yes (Other)
  Sender: FDA-Public Use
  Company Number: US-ABBVIE-14P-163-1206750-00

PATIENT
  Age: 19 Year
  Sex: Female
  Weight: 97.61 kg

DRUGS (5)
  1. HUMIRA [Suspect]
     Indication: PSORIASIS
     Dates: start: 200906, end: 201006
  2. HUMIRA [Suspect]
     Dates: start: 2013
  3. PERCOCET [Concomitant]
     Indication: PAIN
  4. FISH OIL [Concomitant]
     Indication: PRODUCT USED FOR UNKNOWN INDICATION
  5. UNKNOWN MEDICATION [Concomitant]
     Indication: CONTRACEPTION

REACTIONS (9)
  - Haemorrhage [Recovered/Resolved]
  - Pallor [Recovered/Resolved]
  - Weight increased [Not Recovered/Not Resolved]
  - Hunger [Not Recovered/Not Resolved]
  - Anaemia [Recovered/Resolved]
  - Thrombosis [Recovered/Resolved]
  - Asthenia [Recovered/Resolved]
  - Somnolence [Not Recovered/Not Resolved]
  - Gestational hypertension [Recovered/Resolved]
